FAERS Safety Report 4787460-1 (Version None)
Quarter: 2005Q4

REPORT INFORMATION
  Report Type: 
  Country: None (occurrence: None)
  Receive Date: 20051003
  Receipt Date: 20050919
  Transmission Date: 20060501
  Serious: Yes (Life-Threatening, Hospitalization, Other)
  Sender: FDA-Public Use
  Company Number: 2005027347

PATIENT
  Age: 65 Year
  Sex: Female

DRUGS (10)
  1. GEODON [Suspect]
     Indication: BIPOLAR DISORDER
     Dosage: 140 MG (2 IN 1 D), ORAL
     Route: 048
  2. GEODON [Suspect]
     Indication: DELUSION
     Dosage: 140 MG (2 IN 1 D), ORAL
     Route: 048
  3. GEODON [Suspect]
     Indication: PSYCHOTIC DISORDER
     Dosage: 140 MG (2 IN 1 D), ORAL
     Route: 048
  4. ASPIRIN [Concomitant]
  5. DEPAKOTE [Concomitant]
  6. PREMARIN [Concomitant]
  7. HABITROL [Concomitant]
  8. SYNTHROID [Concomitant]
  9. VALIUM [Concomitant]
  10. VITAMIN B6       (VITAMIN B6) [Concomitant]

REACTIONS (20)
  - ANAEMIA [None]
  - ARRHYTHMIA [None]
  - CEREBROVASCULAR ACCIDENT [None]
  - CORONARY ARTERY DISEASE [None]
  - CORONARY ARTERY OCCLUSION [None]
  - ELECTROCARDIOGRAM QT PROLONGED [None]
  - ELECTROENCEPHALOGRAM ABNORMAL [None]
  - FEMORAL ARTERIAL STENOSIS [None]
  - HYPERLIPIDAEMIA [None]
  - INTERVERTEBRAL DISC DISORDER [None]
  - INTRACRANIAL ANEURYSM [None]
  - MYOCARDIAL INFARCTION [None]
  - MYOCARDIAL ISCHAEMIA [None]
  - OSTEOARTHRITIS [None]
  - PARAESTHESIA [None]
  - POST PROCEDURAL COMPLICATION [None]
  - SINUS BRADYCARDIA [None]
  - TORSADE DE POINTES [None]
  - VENTRICULAR TACHYCARDIA [None]
  - WEIGHT INCREASED [None]
